FAERS Safety Report 19861803 (Version 1)
Quarter: 2021Q3

REPORT INFORMATION
  Report Type: Report from Study
  Country: None (occurrence: US)
  Receive Date: 20210921
  Receipt Date: 20210921
  Transmission Date: 20211014
  Serious: Yes (Hospitalization)
  Sender: FDA-Public Use
  Company Number: US-ABBVIE-21K-163-3983476-00

PATIENT
  Sex: Female

DRUGS (3)
  1. HUMIRA [Suspect]
     Active Substance: ADALIMUMAB
     Indication: CROHN^S DISEASE
     Route: 058
  2. PFIZER?BIONTECH COVID?19 VACCINE [Suspect]
     Active Substance: TOZINAMERAN
     Route: 030
     Dates: start: 20210210, end: 20210210
  3. PFIZER?BIONTECH COVID?19 VACCINE [Suspect]
     Active Substance: TOZINAMERAN
     Indication: COVID-19 IMMUNISATION
     Route: 030
     Dates: start: 20210120, end: 20210120

REACTIONS (9)
  - Crohn^s disease [Not Recovered/Not Resolved]
  - Confusional state [Unknown]
  - Illness [Not Recovered/Not Resolved]
  - Glaucoma [Not Recovered/Not Resolved]
  - Vaccination site reaction [Not Recovered/Not Resolved]
  - Blood disorder [Not Recovered/Not Resolved]
  - Platelet count decreased [Unknown]
  - Wound complication [Not Recovered/Not Resolved]
  - Skin ulcer [Not Recovered/Not Resolved]
